FAERS Safety Report 9531533 (Version 1)
Quarter: 2013Q3

REPORT INFORMATION
  Report Type: Spontaneous
  Country: US (occurrence: None)
  Receive Date: 20130917
  Receipt Date: 20130917
  Transmission Date: 20140515
  Serious: Yes (Death)
  Sender: FDA-Public Use
  Company Number: None

PATIENT
  Age: 88 Year
  Sex: Male
  Weight: 76.7 kg

DRUGS (1)
  1. WARFARIN [Suspect]
     Indication: ATRIAL FIBRILLATION
     Dosage: MG EVERY DAY PO
     Route: 048
     Dates: start: 20100901, end: 20130902

REACTIONS (2)
  - Haemorrhage intracranial [None]
  - Haemorrhage [None]
